FAERS Safety Report 18520861 (Version 1)
Quarter: 2020Q4

REPORT INFORMATION
  Report Type: Spontaneous
  Country: US (occurrence: US)
  Receive Date: 20201119
  Receipt Date: 20201119
  Transmission Date: 20210114
  Serious: No
  Sender: FDA-Public Use
  Company Number: US-HIKMA PHARMACEUTICALS USA INC.-US-H14001-20-01683

PATIENT
  Sex: Female

DRUGS (1)
  1. IPRATROPIUM BROMIDE. [Suspect]
     Active Substance: IPRATROPIUM BROMIDE
     Indication: SINUSITIS
     Dosage: TWO SPRAYS IN EACH NOSTRIL FOUR TIMES A DAY
     Route: 065
     Dates: start: 20200324

REACTIONS (1)
  - Underdose [Not Recovered/Not Resolved]
